FAERS Safety Report 21448379 (Version 1)
Quarter: 2022Q4

REPORT INFORMATION
  Report Type: Report from Study
  Country: MX (occurrence: MX)
  Receive Date: 20221013
  Receipt Date: 20221013
  Transmission Date: 20230113
  Serious: No
  Sender: FDA-Public Use
  Company Number: MX-UCBSA-2022058733

PATIENT
  Sex: Female

DRUGS (1)
  1. ROTIGOTINE [Suspect]
     Active Substance: ROTIGOTINE
     Indication: Parkinson^s disease
     Dosage: 0.5 DOSAGE FORM, UNK
     Route: 062

REACTIONS (7)
  - Dyskinesia [Not Recovered/Not Resolved]
  - Nervousness [Recovered/Resolved]
  - Heart rate increased [Recovered/Resolved]
  - Emotional distress [Recovered/Resolved]
  - Weight decreased [Unknown]
  - Product adhesion issue [Unknown]
  - Off label use [Unknown]
